FAERS Safety Report 5783126-X (Version None)
Quarter: 2008Q2

REPORT INFORMATION
  Report Type: 
  Country: None (occurrence: None)
  Receive Date: 20080624
  Receipt Date: 20080617
  Transmission Date: 20081010
  Serious: Yes (Other)
  Sender: FDA-Public Use
  Company Number: GB-ROCHE-570755

PATIENT
  Sex: Female

DRUGS (8)
  1. ORLISTAT [Suspect]
     Indication: OBESITY
     Route: 048
     Dates: start: 20080423
  2. ACETAMINOPHEN W/ CODEINE [Concomitant]
     Indication: ARTHRITIS
     Dosage: DOSAGE REPORTED AS 8/500 MG 3 TIMES DAILY 30/500 MG 2 DAILY
     Route: 048
  3. ACETAMINOPHEN W/ CODEINE [Concomitant]
     Dosage: DOSAGE REPORTED AS 8/500 MG 3 TIMES DAILY 30/500 MG 2 DAILY
     Route: 048
  4. CANDESARTAN [Concomitant]
     Indication: HYPERTENSION
     Route: 048
  5. BENDROFLUMETHIAZIDE [Concomitant]
     Indication: HYPERTENSION
     Dosage: REPORTED AS BENDOFLUMETHIAZIDE
     Route: 048
  6. OMEPRAZOLE [Concomitant]
     Indication: HIATUS HERNIA
     Route: 048
  7. ASPIRIN [Concomitant]
     Indication: ANTICOAGULANT THERAPY
     Route: 048
  8. FLUOXETINE HCL [Concomitant]
     Indication: DEPRESSION
     Route: 048

REACTIONS (1)
  - GLAUCOMA [None]
